FAERS Safety Report 24150055 (Version 2)
Quarter: 2024Q3

REPORT INFORMATION
  Report Type: Spontaneous
  Country: JP (occurrence: JP)
  Receive Date: 20240730
  Receipt Date: 20240809
  Transmission Date: 20241017
  Serious: No
  Sender: AMGEN
  Company Number: JP-TAKEDA-2024TJP008930

PATIENT
  Age: 8 Decade
  Sex: Male

DRUGS (1)
  1. VECTIBIX [Suspect]
     Active Substance: PANITUMUMAB
     Indication: Colon cancer
     Dosage: 6 MILLIGRAM/KILOGRAM, Q2WEEKS
     Route: 042

REACTIONS (2)
  - Skin disorder [Recovering/Resolving]
  - Herpes zoster [Recovering/Resolving]
